FAERS Safety Report 20669543 (Version 2)
Quarter: 2022Q3

REPORT INFORMATION
  Report Type: Spontaneous
  Country: FR (occurrence: FR)
  Receive Date: 20220404
  Receipt Date: 20220704
  Transmission Date: 20221027
  Serious: Yes (Hospitalization, Disabling, Other)
  Sender: FDA-Public Use
  Company Number: FR-TEVA-2021-FR-1918536

PATIENT
  Age: 47 Year
  Sex: Male

DRUGS (16)
  1. LINEZOLID [Suspect]
     Active Substance: LINEZOLID
     Dosage: UNK
     Route: 065
  2. AMLODIPINE BESYLATE [Suspect]
     Active Substance: AMLODIPINE BESYLATE
     Dosage: UNK
     Route: 065
  3. COTRIMOXAZOLE [Suspect]
     Active Substance: SULFAMETHOXAZOLE\TRIMETHOPRIM
     Dosage: UNK
     Route: 065
     Dates: start: 20170816
  4. RAMIPRIL [Suspect]
     Active Substance: RAMIPRIL
     Dosage: UNK
     Route: 065
  5. GENTAMICIN [Concomitant]
     Active Substance: GENTAMICIN
     Dosage: UNK
     Route: 065
     Dates: start: 20170826
  6. PAROXETINE [Concomitant]
     Active Substance: PAROXETINE
     Dosage: UNK
     Route: 065
     Dates: start: 20191015
  7. TIXOCORTOL PIVALATE [Concomitant]
     Active Substance: TIXOCORTOL PIVALATE
     Dosage: UNK
     Route: 065
  8. DEXTROMETHORPHAN HYDROBROMIDE [Concomitant]
     Active Substance: DEXTROMETHORPHAN HYDROBROMIDE
     Dosage: UNK
     Route: 065
  9. CLINDAMYCIN [Concomitant]
     Active Substance: CLINDAMYCIN
     Dosage: 2 DF, 1X/DAY (DURING 4 WEEKS)
     Route: 065
     Dates: start: 20170816
  10. CLINDAMYCIN [Concomitant]
     Active Substance: CLINDAMYCIN
     Dosage: 2 DF
     Route: 042
     Dates: start: 20170826
  11. AUGMENTIN [Concomitant]
     Active Substance: AMOXICILLIN\CLAVULANATE POTASSIUM
     Dosage: 2 DF, 2X/DAY (TO TAKE IN THE MORNING AND IN THE EVENING)
     Route: 065
  12. AUGMENTIN [Concomitant]
     Active Substance: AMOXICILLIN\CLAVULANATE POTASSIUM
     Dosage: 1 DF, 3X/DAY
     Route: 065
     Dates: start: 20171214, end: 20171220
  13. OXAZEPAM [Concomitant]
     Active Substance: OXAZEPAM
     Dosage: UNK
     Route: 065
     Dates: start: 20191015
  14. BACTRIM [Concomitant]
     Active Substance: SULFAMETHOXAZOLE\TRIMETHOPRIM
     Dosage: 2 DF
     Route: 042
     Dates: start: 20170826, end: 20170826
  15. VANCOMYCIN [Concomitant]
     Active Substance: VANCOMYCIN
     Dosage: UNK
     Route: 065
     Dates: start: 20170829
  16. VANCOMYCIN [Concomitant]
     Active Substance: VANCOMYCIN
     Dosage: UNK
     Route: 065
     Dates: start: 20170826

REACTIONS (33)
  - Depression [Unknown]
  - Pericardial effusion [Recovering/Resolving]
  - Hyperleukocytosis [Recovered/Resolved]
  - Acute kidney injury [Unknown]
  - Urinary tract pain [Unknown]
  - Left ventricular dysfunction [Recovered/Resolved]
  - Drug reaction with eosinophilia and systemic symptoms [Unknown]
  - Disturbance in attention [Unknown]
  - Diarrhoea [Unknown]
  - Pyrexia [Unknown]
  - Skin lesion [Unknown]
  - Back pain [Unknown]
  - Haematuria [Unknown]
  - Troponin increased [Unknown]
  - Asthenia [Unknown]
  - Rash [Unknown]
  - Hypertension [Unknown]
  - Epistaxis [Unknown]
  - Pulmonary mass [Unknown]
  - Abdominal pain [Unknown]
  - Osteitis [Unknown]
  - Respiratory distress [Unknown]
  - Cognitive disorder [Unknown]
  - Behaviour disorder [Unknown]
  - Septic phlebitis [Unknown]
  - Vomiting [Unknown]
  - Hypertension [Unknown]
  - Memory impairment [Unknown]
  - Staphylococcal sepsis [Unknown]
  - Scar [Unknown]
  - Sleep disorder [Unknown]
  - Psychiatric decompensation [Unknown]
  - Joint ankylosis [Unknown]

NARRATIVE: CASE EVENT DATE: 20170101
